FAERS Safety Report 8011855-6 (Version None)
Quarter: 2011Q4

REPORT INFORMATION
  Report Type: 
  Country: None (occurrence: None)
  Receive Date: 20111228
  Receipt Date: 20111219
  Transmission Date: 20120403
  Serious: Yes (Other)
  Sender: FDA-Public Use
  Company Number: TR-ASTRAZENECA-2011SE74758

PATIENT
  Age: 37 Year
  Sex: Male
  Weight: 80 kg

DRUGS (1)
  1. NEXIUM [Suspect]
     Indication: GASTROOESOPHAGEAL REFLUX DISEASE
     Route: 048
     Dates: start: 20111208, end: 20111209

REACTIONS (5)
  - PRESYNCOPE [None]
  - ARRHYTHMIA [None]
  - TREMOR [None]
  - DYSPHAGIA [None]
  - DIZZINESS [None]
